FAERS Safety Report 4405464-5 (Version None)
Quarter: 2004Q3

REPORT INFORMATION
  Report Type: 
  Country: None (occurrence: None)
  Receive Date: 20040723
  Receipt Date: 20030904
  Transmission Date: 20050211
  Serious: No
  Sender: FDA-Public Use
  Company Number: US-GLAXOSMITHKLINE-A0424687A

PATIENT
  Age: 81 Year
  Sex: Female

DRUGS (16)
  1. AVANDIA [Suspect]
     Dosage: 4MG PER DAY
     Route: 048
  2. ZIAC [Concomitant]
  3. AVAPRO [Concomitant]
  4. GLIPIZIDE [Concomitant]
  5. LIPITOR [Concomitant]
  6. SYNTHROID [Concomitant]
  7. VITAMIN C [Concomitant]
  8. MULTI-VITAMIN [Concomitant]
  9. FOLIC ACID [Concomitant]
  10. THIAMINE HCL [Concomitant]
  11. SIMETHICONE [Concomitant]
  12. CALCIUM + VITAMIN D [Concomitant]
  13. VITAMIN E [Concomitant]
  14. AVAPRO [Concomitant]
  15. LECITHIN [Concomitant]
  16. BENTYL [Concomitant]

REACTIONS (3)
  - DYSPNOEA EXERTIONAL [None]
  - SLUGGISHNESS [None]
  - WEIGHT INCREASED [None]
